FAERS Safety Report 21852047 (Version 1)
Quarter: 2023Q1

REPORT INFORMATION
  Report Type: Spontaneous
  Country: US (occurrence: US)
  Receive Date: 20230112
  Receipt Date: 20230112
  Transmission Date: 20230418
  Serious: No
  Sender: FDA-Public Use
  Company Number: US-009507513-2212USA010330

PATIENT
  Age: 21 Year
  Sex: Male

DRUGS (7)
  1. NOXAFIL [Suspect]
     Active Substance: POSACONAZOLE
     Indication: Fungal sepsis
     Dosage: UNK
  2. NOXAFIL [Suspect]
     Active Substance: POSACONAZOLE
     Indication: Wound sepsis
  3. CEFTAZIDIME [Concomitant]
     Active Substance: CEFTAZIDIME
  4. METRONIDAZOLE [Concomitant]
     Active Substance: METRONIDAZOLE
  5. SULFAMETHOXAZOLE\TRIMETHOPRIM [Concomitant]
     Active Substance: SULFAMETHOXAZOLE\TRIMETHOPRIM
  6. MICAFUNGIN [Concomitant]
     Active Substance: MICAFUNGIN
  7. AMPHOTERICIN B [Concomitant]
     Active Substance: AMPHOTERICIN B

REACTIONS (1)
  - Product use in unapproved indication [Unknown]
